FAERS Safety Report 20033315 (Version 1)
Quarter: 2021Q4

REPORT INFORMATION
  Report Type: Spontaneous
  Country: US (occurrence: US)
  Receive Date: 20211104
  Receipt Date: 20211104
  Transmission Date: 20220303
  Serious: No
  Sender: FDA-Public Use
  Company Number: US-HORIZON THERAPEUTICS-HZN-2021-007703

PATIENT
  Age: 39 Year
  Sex: Female

DRUGS (2)
  1. TEPEZZA [Suspect]
     Active Substance: TEPROTUMUMAB-TRBW
     Indication: Endocrine ophthalmopathy
     Dosage: 1 DOSAGE FORM (1 INFUSION), EVERY 3 WEEKS
     Route: 042
     Dates: start: 202007
  2. TEPEZZA [Suspect]
     Active Substance: TEPROTUMUMAB-TRBW
     Dosage: 1 DOSAGE FORM (1 INFUSION), EVERY 3 WEEKS
     Route: 042
     Dates: start: 202012, end: 202012

REACTIONS (1)
  - Inappropriate schedule of product administration [Recovered/Resolved]
